FAERS Safety Report 6862255-3 (Version None)
Quarter: 2010Q3

REPORT INFORMATION
  Report Type: 
  Country: None (occurrence: None)
  Receive Date: 20100721
  Receipt Date: 20100504
  Transmission Date: 20110219
  Serious: Yes (Hospitalization)
  Sender: FDA-Public Use
  Company Number: DK-NOVOPROD-307352

PATIENT
  Age: 41 Year
  Sex: Male
  Weight: 124 kg

DRUGS (23)
  1. VICTOZA [Suspect]
     Indication: TYPE 2 DIABETES MELLITUS
     Dosage: 6 MG, QD
     Route: 058
     Dates: start: 20100203
  2. CITALOPRAM HYDROBROMIDE [Concomitant]
     Indication: DEPRESSION
     Dosage: 20 MG, QD
     Route: 048
  3. BISOPROLOL [Concomitant]
     Indication: ANGINA PECTORIS
     Dosage: 20 MG, QD
     Route: 048
  4. FUROSEMIDE [Concomitant]
     Indication: DIURETIC THERAPY
     Dosage: 60 MG, QD
     Route: 048
  5. FUROSEMIDE [Concomitant]
     Dosage: 80 MG, QD
     Route: 048
  6. GLYCERYL TRINITRATE [Concomitant]
     Indication: CHEST PAIN
     Dosage: 0.4 MG, PRN
  7. ACETYLSALICYLIC ACID [Concomitant]
     Indication: PROPHYLAXIS
     Dosage: 75 MG, QD
     Route: 048
  8. CODEINE [Concomitant]
     Indication: PAIN
     Dosage: 75 MG, QD
     Route: 048
  9. LANSOPRAZOL [Concomitant]
     Indication: GASTROOESOPHAGEAL REFLUX DISEASE
     Dosage: 30 MG, QD
     Route: 048
  10. GEMFIBROZIL [Concomitant]
     Indication: HYPERCHOLESTEROLAEMIA
     Dosage: 1.2 G/%, QD
     Route: 048
  11. IVABRADINE [Concomitant]
     Indication: ANGINA PECTORIS
     Dosage: 15 MG, QD
     Route: 048
  12. NICORANDIL [Concomitant]
     Indication: CARDIAC DISORDER
     Dosage: 10 MG, QD
     Route: 048
  13. TRAMADOL [Concomitant]
     Indication: PAIN
     Dosage: 50 MG, UP TO 4 TIMES PER DAY
  14. POTASSIUM CHLORIDE [Concomitant]
     Dosage: 1.5 MG, QD
     Route: 048
  15. PARACETAMOL [Concomitant]
     Indication: PAIN
     Dosage: 4 G, QD
     Route: 048
  16. AMLODIPINE [Concomitant]
     Indication: ANGINA PECTORIS
     Dosage: 10 MG, QD
  17. ISOSORBIDE MONONITRATE [Concomitant]
     Indication: CARDIAC DISORDER
     Dosage: 120 MG, QD
  18. METOCLOPRAMIDE [Concomitant]
     Indication: NAUSEA
     Dosage: 30 MG, QD
     Route: 048
  19. NOVOMIX 30 [Concomitant]
     Indication: DIABETES MELLITUS
     Route: 058
  20. ACTRAPID [Concomitant]
     Indication: DIABETES MELLITUS
     Route: 058
  21. ATORVASTATIN [Concomitant]
     Indication: HYPERCHOLESTEROLAEMIA
     Dosage: 80 MG, QD
     Route: 048
  22. METFORMIN [Concomitant]
     Indication: TYPE 2 DIABETES MELLITUS
     Dosage: 1 G, QD
     Route: 048
  23. RAMIPRIL [Concomitant]
     Indication: THROMBOSIS PROPHYLAXIS
     Dosage: 10 MG, QD
     Route: 048

REACTIONS (1)
  - IMPAIRED GASTRIC EMPTYING [None]
